FAERS Safety Report 14962795 (Version 1)
Quarter: 2018Q2

REPORT INFORMATION
  Report Type: Spontaneous
  Country: US (occurrence: US)
  Receive Date: 20180601
  Receipt Date: 20180601
  Transmission Date: 20180711
  Serious: Yes (Other)
  Sender: FDA-Public Use
  Company Number: US-MYLANLABS-2018M1031338

PATIENT

DRUGS (1)
  1. ELIMITE [Suspect]
     Active Substance: PERMETHRIN
     Indication: ACARODERMATITIS
     Dosage: UNK
     Route: 061

REACTIONS (6)
  - Erythema [Unknown]
  - Drug hypersensitivity [Unknown]
  - Intentional product misuse [Recovered/Resolved]
  - Pruritus generalised [Not Recovered/Not Resolved]
  - Miliaria [Not Recovered/Not Resolved]
  - Medication residue present [Not Recovered/Not Resolved]

NARRATIVE: CASE EVENT DATE: 20110501
